FAERS Safety Report 17640928 (Version 3)
Quarter: 2020Q2

REPORT INFORMATION
  Report Type: Spontaneous
  Country: US (occurrence: US)
  Receive Date: 20200407
  Receipt Date: 20200514
  Transmission Date: 20200713
  Serious: No
  Sender: FDA-Public Use
  Company Number: US-B.I. PHARMACEUTICALS,INC./RIDGEFIELD-2020-US-018546

PATIENT
  Age: 59 Year
  Sex: Female

DRUGS (1)
  1. SPIRIVA RESPIMAT [Suspect]
     Active Substance: TIOTROPIUM BROMIDE
     Indication: ASTHMA
     Dosage: 2 INHALATIONS IN THE AM AND 2 INHALATIONS AT NIGHT; FORM OF ADMIN: INHALATION SPRAY
     Route: 065
     Dates: start: 202002

REACTIONS (3)
  - Dose calculation error [Unknown]
  - Device malfunction [Unknown]
  - Overdose [Unknown]

NARRATIVE: CASE EVENT DATE: 202002
